FAERS Safety Report 25883918 (Version 2)
Quarter: 2025Q4

REPORT INFORMATION
  Report Type: Spontaneous
  Country: EU (occurrence: EU)
  Receive Date: 20251006
  Receipt Date: 20251221
  Transmission Date: 20260118
  Serious: Yes (Hospitalization)
  Sender: AUROBINDO
  Company Number: EU-AstrazenecaRSG-2610-D926QC00001(Prod)000003

PATIENT
  Age: 52 Year
  Sex: Female
  Weight: 60 kg

DRUGS (7)
  1. CARBOPLATIN [Suspect]
     Active Substance: CARBOPLATIN
     Indication: Triple negative breast cancer
     Dosage: 1.5 AUC
     Dates: start: 20250313, end: 20250603
  2. PACLITAXEL [Suspect]
     Active Substance: PACLITAXEL
     Indication: Triple negative breast cancer
     Dosage: 80 MG/M^2 80 MILLIGRAM/SQ. METER
     Route: 065
     Dates: start: 20250313, end: 20250603
  3. PEMBROLIZUMAB [Suspect]
     Active Substance: PEMBROLIZUMAB
     Indication: Triple negative breast cancer
     Dosage: 200 MILLIGRAM
  4. EPIRUBICIN [Suspect]
     Active Substance: EPIRUBICIN
     Indication: Triple negative breast cancer
     Dosage: 90 MILLIGRAM/SQ. METER
  5. CYCLOPHOSPHAMIDE [Suspect]
     Active Substance: CYCLOPHOSPHAMIDE
     Indication: Triple negative breast cancer
     Dosage: 600 MILLIGRAM/SQ. METER
     Dates: start: 20250625, end: 20250716
  6. NEUPOGEN [Concomitant]
     Active Substance: FILGRASTIM
     Indication: Neutropenia
     Dosage: 30 IU, OTHER
  7. METHYLPREDNISOLONE ACEPONATE [Concomitant]
     Active Substance: METHYLPREDNISOLONE ACEPONATE
     Indication: Rash maculo-papular
     Dosage: 0.1 PERCENT, AS NECESSARY
     Route: 048
     Dates: start: 20250502

REACTIONS (1)
  - Hypopituitarism [Not Recovered/Not Resolved]

NARRATIVE: CASE EVENT DATE: 20250905
